FAERS Safety Report 5597941-9 (Version None)
Quarter: 2008Q1

REPORT INFORMATION
  Report Type: 
  Country: None (occurrence: None)
  Receive Date: 20080116
  Receipt Date: 20080109
  Transmission Date: 20080703
  Serious: Yes (Hospitalization)
  Sender: FDA-Public Use
  Company Number: B0502483A

PATIENT
  Age: 45 Year
  Sex: Female

DRUGS (1)
  1. PARACETAMOL (FORMULATION UNKNOWN) (ACETAMINOPHEN) [Suspect]
     Indication: DRUG USE FOR UNKNOWN INDICATION

REACTIONS (1)
  - RASH MACULO-PAPULAR [None]
